FAERS Safety Report 25817181 (Version 1)
Quarter: 2025Q3

REPORT INFORMATION
  Report Type: Report from Study
  Country: US (occurrence: US)
  Receive Date: 20250918
  Receipt Date: 20250918
  Transmission Date: 20251021
  Serious: Yes (Death)
  Sender: ROCHE
  Company Number: US-ROCHE-10000089702

PATIENT
  Sex: Female

DRUGS (2)
  1. RITUXAN [Suspect]
     Active Substance: RITUXIMAB
     Indication: Warm autoimmune haemolytic anaemia
     Dosage: INFUSE 660MG INTRAVENOUSLY ONCE A WEEK FOR 4 WEEK(S)
     Route: 065
  2. RITUXAN [Suspect]
     Active Substance: RITUXIMAB
     Dosage: INFUSE 660MG INTRAVENOUSLY ONCE A WEEK FOR 4 WEEK(S)
     Route: 042

REACTIONS (2)
  - Off label use [Unknown]
  - Death [Fatal]
